FAERS Safety Report 5407908-9 (Version None)
Quarter: 2007Q3

REPORT INFORMATION
  Report Type: 
  Country: None (occurrence: None)
  Receive Date: 20070803
  Receipt Date: 20070424
  Transmission Date: 20080115
  Serious: Yes (Hospitalization)
  Sender: FDA-Public Use
  Company Number: CLOF-10413

PATIENT
  Age: 17 Year
  Sex: Male
  Weight: 40 kg

DRUGS (18)
  1. CLOFARABINE. MFR: GENZYME [Suspect]
     Indication: ACUTE LYMPHOCYTIC LEUKAEMIA
     Dosage: 42 MG QD X 5 IV
     Route: 042
     Dates: start: 20061127, end: 20061201
  2. ETOPOSIDE [Suspect]
     Indication: ACUTE LYMPHOCYTIC LEUKAEMIA
     Dosage: 140 MG QD X 5 IV
     Route: 042
     Dates: start: 20061127, end: 20061201
  3. CYCLOPHOSPHAMIDE [Suspect]
     Indication: ACUTE LYMPHOCYTIC LEUKAEMIA
     Dosage: 615 MG QD X 5 IV
     Route: 042
     Dates: start: 20061127, end: 20061201
  4. BACTRIM [Concomitant]
  5. POTASSIUM CHLORIDE [Concomitant]
  6. VALTREX [Concomitant]
  7. COLACE [Concomitant]
  8. MYLANTA [Concomitant]
  9. OXYCONTIN [Concomitant]
  10. OXYCODONE HCL [Concomitant]
  11. DAPSONE [Concomitant]
  12. AMBISOME [Concomitant]
  13. FILGRASTIM [Concomitant]
  14. AZTREONAM [Concomitant]
  15. TYLENOL (CAPLET) [Concomitant]
  16. HYDROCORTISONE [Concomitant]
  17. BENADRYL [Concomitant]
  18. ALBUTEROL [Concomitant]

REACTIONS (35)
  - BACTERAEMIA [None]
  - BLAST CELL COUNT INCREASED [None]
  - BLAST CELLS PRESENT [None]
  - BLOOD CULTURE POSITIVE [None]
  - BLOOD GLUCOSE INCREASED [None]
  - BLOOD PHOSPHORUS DECREASED [None]
  - BLOOD PRESSURE DECREASED [None]
  - BONE MARROW FAILURE [None]
  - CAECITIS [None]
  - DECREASED APPETITE [None]
  - DENTAL CARIES [None]
  - DISEASE PROGRESSION [None]
  - DIZZINESS [None]
  - ENTEROBACTER INFECTION [None]
  - FEBRILE NEUTROPENIA [None]
  - FUNGAL INFECTION [None]
  - GENERAL PHYSICAL HEALTH DETERIORATION [None]
  - GINGIVITIS [None]
  - HAEMATOCRIT DECREASED [None]
  - HAEMOGLOBIN DECREASED [None]
  - INFECTION [None]
  - INNER EAR DISORDER [None]
  - LACTOBACILLUS INFECTION [None]
  - MALAISE [None]
  - MOUTH ULCERATION [None]
  - MUCOSAL INFLAMMATION [None]
  - NODULE [None]
  - OBSTRUCTION [None]
  - ORAL PAIN [None]
  - PHARYNGOLARYNGEAL PAIN [None]
  - PLATELET COUNT DECREASED [None]
  - PLEURAL DISORDER [None]
  - POOR PERSONAL HYGIENE [None]
  - SINUS DISORDER [None]
  - TOOTH DISORDER [None]
